FAERS Safety Report 6064741-5 (Version None)
Quarter: 2009Q1

REPORT INFORMATION
  Report Type: 
  Country: None (occurrence: None)
  Receive Date: 20090204
  Receipt Date: 20080923
  Transmission Date: 20090719
  Serious: No
  Sender: FDA-Public Use
  Company Number: A0747608A

PATIENT
  Sex: Male

DRUGS (1)
  1. ARIXTRA [Suspect]
     Indication: DRUG USE FOR UNKNOWN INDICATION
     Route: 058

REACTIONS (3)
  - APPLICATION SITE DISCOMFORT [None]
  - MEDICATION ERROR [None]
  - PRODUCT QUALITY ISSUE [None]
